FAERS Safety Report 10156141 (Version 1)
Quarter: 2014Q2

REPORT INFORMATION
  Report Type: Spontaneous
  Country: US (occurrence: US)
  Receive Date: 20140506
  Receipt Date: 20140506
  Transmission Date: 20141212
  Serious: No
  Sender: FDA-Public Use
  Company Number: US-009507513-2012SP009756

PATIENT
  Age: 30 Year
  Sex: Male

DRUGS (2)
  1. CLARITIN [Suspect]
     Indication: HYPERSENSITIVITY
     Dosage: UNK UNK, PRN
     Route: 048
     Dates: start: 2011
  2. CLARITIN [Suspect]
     Dosage: 20 MG, ONCE
     Route: 048

REACTIONS (1)
  - Overdose [Unknown]
